FAERS Safety Report 9570863 (Version 1)
Quarter: 2013Q4

REPORT INFORMATION
  Report Type: Spontaneous
  Country: DE (occurrence: JP)
  Receive Date: 20131001
  Receipt Date: 20131001
  Transmission Date: 20140711
  Serious: Yes (Hospitalization)
  Sender: FDA-Public Use
  Company Number: JP-BRACCO-007475

PATIENT
  Age: 29 Year
  Sex: Female

DRUGS (1)
  1. IOPAMIRON [Suspect]
     Indication: COMPUTERISED TOMOGRAM
     Route: 042
     Dates: start: 20130925, end: 20130925

REACTIONS (2)
  - Erythema [Recovered/Resolved]
  - Dysphonia [Recovered/Resolved]
